FAERS Safety Report 8829840 (Version 1)
Quarter: 2012Q4

REPORT INFORMATION
  Report Type: 
  Country: US (occurrence: US)
  Receive Date: 20121008
  Receipt Date: 20121008
  Transmission Date: 20130627
  Serious: Yes (Death)
  Sender: FDA-Public Use
  Company Number: US-ROCHE-1133808

PATIENT
  Sex: Female

DRUGS (2)
  1. RITUXAN [Suspect]
     Indication: THROMBOCYTOPENIA
     Dosage: Doses received on: 03/Aug/2006, 10/Aug/2006, 17/Aug/2006 and 24/Aug/2006
     Route: 042
     Dates: start: 20060803, end: 20060824
  2. RITUXAN [Suspect]
     Indication: OFF LABEL USE

REACTIONS (3)
  - Disease progression [Fatal]
  - Haemorrhage [Fatal]
  - Platelet count decreased [Fatal]
